FAERS Safety Report 5017298-1 (Version None)
Quarter: 2006Q2

REPORT INFORMATION
  Report Type: 
  Country: None (occurrence: None)
  Receive Date: 20060602
  Receipt Date: 20060523
  Transmission Date: 20061013
  Serious: Yes (Hospitalization)
  Sender: FDA-Public Use
  Company Number: US-ABBOTT-06P-163-0334096-00

PATIENT
  Sex: Female
  Weight: 49.94 kg

DRUGS (6)
  1. DEPAKOTE [Suspect]
     Indication: BIPOLAR DISORDER
     Route: 048
     Dates: end: 20050529
  2. DEPAKOTE [Suspect]
     Route: 048
     Dates: start: 20050530, end: 20050801
  3. DEPAKOTE [Suspect]
     Route: 048
     Dates: start: 20050801
  4. RISPERIDONE [Concomitant]
     Indication: BIPOLAR DISORDER
     Route: 048
     Dates: end: 20050529
  5. RISPERIDONE [Concomitant]
     Route: 048
     Dates: start: 20050530, end: 20050801
  6. RISPERIDONE [Concomitant]
     Route: 048
     Dates: start: 20050801

REACTIONS (7)
  - AMNESIA [None]
  - CONFUSIONAL STATE [None]
  - DEPRESSION [None]
  - FATIGUE [None]
  - HAIR COLOUR CHANGES [None]
  - PSYCHOTIC DISORDER [None]
  - SKIN DISORDER [None]
